FAERS Safety Report 4463977-4 (Version None)
Quarter: 2004Q3

REPORT INFORMATION
  Report Type: 
  Country: None (occurrence: None)
  Receive Date: 20040929
  Receipt Date: 20040914
  Transmission Date: 20050211
  Serious: Yes (Death)
  Sender: FDA-Public Use
  Company Number: US_0409105286

PATIENT
  Age: 64 Year
  Sex: Female
  Weight: 116 kg

DRUGS (5)
  1. ZYPREXA [Suspect]
     Indication: SCHIZOPHRENIA, PARANOID TYPE
     Dosage: 20 MG/1
     Dates: start: 20040831, end: 20040831
  2. HALOPERIDOL [Concomitant]
  3. LEVOMEPROMAZINE [Concomitant]
  4. DIAZEPAM [Concomitant]
  5. CARBAMAZEPINE [Concomitant]

REACTIONS (3)
  - BLOOD GLUCOSE INCREASED [None]
  - SOMNOLENCE [None]
  - SUDDEN DEATH [None]
